FAERS Safety Report 8195759 (Version 23)
Quarter: 2015Q2

REPORT INFORMATION
  Report Type: Report from Study
  Country: CA (occurrence: CA)
  Receive Date: 20111024
  Receipt Date: 20150602
  Transmission Date: 20150821
  Serious: Yes (Hospitalization, Other)
  Sender: FDA-Public Use
  Company Number: PHHY2011CA72264

PATIENT
  Age: 42 Year
  Sex: Female

DRUGS (4)
  1. SANDOSTATIN LAR DEPOT [Suspect]
     Active Substance: OCTREOTIDE ACETATE
     Dosage: 20 MG, EVERY 4 WEEKS
     Route: 030
  2. SANDOSTATIN LAR DEPOT [Suspect]
     Active Substance: OCTREOTIDE ACETATE
     Dosage: 20 MG, QMO
     Route: 030
  3. SANDOSTATIN LAR DEPOT [Suspect]
     Active Substance: OCTREOTIDE ACETATE
     Indication: NEUROENDOCRINE TUMOUR
     Dosage: 20 MG, EVERY 3 WEEKS
     Route: 030
     Dates: start: 20101109
  4. SANDOSTATIN LAR DEPOT [Suspect]
     Active Substance: OCTREOTIDE ACETATE
     Dosage: 20 MG, EVERY 3 WEEKS
     Route: 030

REACTIONS (27)
  - Hand fracture [Unknown]
  - Cholelithiasis [Unknown]
  - Abdominal distension [Unknown]
  - Neoplasm [Unknown]
  - Blood iron decreased [Not Recovered/Not Resolved]
  - Weight gain poor [Recovering/Resolving]
  - Serum ferritin decreased [Not Recovered/Not Resolved]
  - Functional gastrointestinal disorder [Unknown]
  - Alopecia areata [Unknown]
  - Alopecia [Unknown]
  - Abdominal pain [Recovered/Resolved]
  - Barium impaction [Unknown]
  - Oedema peripheral [Unknown]
  - Hyperphagia [Unknown]
  - Increased appetite [Recovering/Resolving]
  - Cough [Unknown]
  - Weight decreased [Recovering/Resolving]
  - Influenza [Recovered/Resolved]
  - Malaise [Unknown]
  - Intestinal obstruction [Recovered/Resolved]
  - Pyrexia [Unknown]
  - Abdominal pain upper [Not Recovered/Not Resolved]
  - Bronchitis [Unknown]
  - Lymphadenopathy [Unknown]
  - Haemoglobin decreased [Not Recovered/Not Resolved]
  - Back pain [Unknown]
  - Gallbladder disorder [Unknown]

NARRATIVE: CASE EVENT DATE: 2014
